FAERS Safety Report 25344261 (Version 1)
Quarter: 2025Q2

REPORT INFORMATION
  Report Type: Spontaneous
  Country: US (occurrence: None)
  Receive Date: 20250521
  Receipt Date: 20250521
  Transmission Date: 20250717
  Serious: Yes (Disabling)
  Sender: FDA-CTU
  Company Number: None

PATIENT
  Age: 78 Year
  Sex: Female
  Weight: 58.5 kg

DRUGS (7)
  1. LEQVIO [Suspect]
     Active Substance: INCLISIRAN SODIUM
     Indication: Lipids increased
     Route: 058
     Dates: start: 20240806, end: 20250520
  2. THYROXINE [Concomitant]
     Active Substance: LEVOTHYROXINE
  3. ESTROGENS [Concomitant]
     Active Substance: ESTROGENS
  4. vaginal cream [Concomitant]
  5. FEXOFENADINE [Concomitant]
     Active Substance: FEXOFENADINE HYDROCHLORIDE
  6. ASPIRIN [Concomitant]
     Active Substance: ASPIRIN
  7. VITAMIN D [Concomitant]
     Active Substance: VITAMIN D NOS

REACTIONS (4)
  - Fatigue [None]
  - Thirst [None]
  - Influenza like illness [None]
  - Poor quality sleep [None]

NARRATIVE: CASE EVENT DATE: 20250520
